FAERS Safety Report 9885316 (Version 5)
Quarter: 2015Q3

REPORT INFORMATION
  Report Type: Report from Study
  Country: BR (occurrence: BR)
  Receive Date: 20140210
  Receipt Date: 20150708
  Transmission Date: 20151125
  Serious: Yes (Other)
  Sender: FDA-Public Use
  Company Number: PHHY2014BR014354

PATIENT
  Sex: Female
  Weight: 62 kg

DRUGS (2)
  1. OMEPRAZOLE. [Concomitant]
     Active Substance: OMEPRAZOLE
     Indication: PROPHYLAXIS
     Dosage: 1 DF, QD
     Route: 048
  2. ACLASTA [Suspect]
     Active Substance: ZOLEDRONIC ACID
     Indication: OSTEOPOROSIS
     Dosage: 1 DF EVERY YEAR
     Route: 042
     Dates: start: 2012

REACTIONS (12)
  - Decreased appetite [Not Recovered/Not Resolved]
  - Spinal pain [Not Recovered/Not Resolved]
  - Depression [Not Recovered/Not Resolved]
  - Concomitant disease aggravated [Not Recovered/Not Resolved]
  - Abasia [Not Recovered/Not Resolved]
  - Nausea [Not Recovered/Not Resolved]
  - Pain [Unknown]
  - Panic disorder [Not Recovered/Not Resolved]
  - Malaise [Unknown]
  - Inflammation [Not Recovered/Not Resolved]
  - Feeding disorder [Not Recovered/Not Resolved]
  - Arthralgia [Not Recovered/Not Resolved]
